FAERS Safety Report 14170670 (Version 1)
Quarter: 2017Q4

REPORT INFORMATION
  Report Type: Spontaneous
  Country: DE (occurrence: DE)
  Receive Date: 20171108
  Receipt Date: 20171108
  Transmission Date: 20180321
  Serious: Yes (Hospitalization, Other)
  Sender: FDA-Public Use
  Company Number: DE-GLAXOSMITHKLINE-DE2017GSK170833

PATIENT
  Sex: Male

DRUGS (2)
  1. DUODART [Suspect]
     Active Substance: DUTASTERIDE\TAMSULOSIN
     Indication: PROSTATIC DISORDER
     Dosage: UNK
     Dates: start: 201507
  2. LYRICA [Concomitant]
     Active Substance: PREGABALIN
     Indication: MENTAL DISORDER
     Dosage: UNK
     Dates: start: 201507

REACTIONS (3)
  - Fall [Unknown]
  - Loss of consciousness [Recovered/Resolved]
  - Head injury [Unknown]

NARRATIVE: CASE EVENT DATE: 201507
